FAERS Safety Report 23354891 (Version 1)
Quarter: 2024Q1

REPORT INFORMATION
  Report Type: Spontaneous
  Country: US (occurrence: US)
  Receive Date: 20240101
  Receipt Date: 20240101
  Transmission Date: 20240410
  Serious: Yes (Hospitalization, Disabling, Other)
  Sender: FDA-Public Use
  Company Number: US-PRINSTON PHARMACEUTICAL INC.-2023PRN00643

PATIENT
  Age: 56 Year
  Sex: Female

DRUGS (27)
  1. ESCITALOPRAM [Suspect]
     Active Substance: ESCITALOPRAM OXALATE
     Indication: Post-traumatic stress disorder
     Dosage: 10 MG
     Dates: start: 2015, end: 2018
  2. ESCITALOPRAM [Suspect]
     Active Substance: ESCITALOPRAM OXALATE
     Indication: Anxiety
     Dosage: 10 MG, 1X/DAY
  3. ESCITALOPRAM [Suspect]
     Active Substance: ESCITALOPRAM OXALATE
     Indication: Depression
  4. ESCITALOPRAM [Suspect]
     Active Substance: ESCITALOPRAM OXALATE
     Indication: Post-traumatic stress disorder
     Dosage: 20 MG, 1X/DAY
     Dates: start: 2018
  5. ESCITALOPRAM [Suspect]
     Active Substance: ESCITALOPRAM OXALATE
     Indication: Anxiety
     Dosage: 30 MG, 1X/DAY
     Dates: start: 202206
  6. ESCITALOPRAM [Suspect]
     Active Substance: ESCITALOPRAM OXALATE
     Indication: Depression
     Dosage: UNK (REDUCED DOSE)
  7. PHENTERMINE HYDROCHLORIDE [Suspect]
     Active Substance: PHENTERMINE HYDROCHLORIDE
     Indication: Weight increased
     Dosage: 20 MG, 1X/DAY (1 PILL WITH A BIG GLASS OF WATER 30 MINUTES BEFORE STARTING HER DAY)
     Dates: start: 2022
  8. ARIPIPRAZOLE [Suspect]
     Active Substance: ARIPIPRAZOLE
     Dosage: UNK
     Dates: start: 2022
  9. ESCITALOPRAM OXALATE [Suspect]
     Active Substance: ESCITALOPRAM OXALATE
     Indication: Post-traumatic stress disorder
     Dosage: 20 MG, 1X/DAY
     Dates: start: 2018
  10. ESCITALOPRAM OXALATE [Suspect]
     Active Substance: ESCITALOPRAM OXALATE
     Indication: Anxiety
  11. ESCITALOPRAM OXALATE [Suspect]
     Active Substance: ESCITALOPRAM OXALATE
     Indication: Depression
  12. GABAPENTIN [Suspect]
     Active Substance: GABAPENTIN
     Indication: Nerve injury
     Dosage: 1800 MG, 3X/DAY (TWO 300 MG PILLS EVERY 8 HOURS)
     Dates: start: 2015
  13. GABAPENTIN [Suspect]
     Active Substance: GABAPENTIN
     Indication: Neuralgia
     Dosage: 300 MG, 2X/DAY
  14. GABAPENTIN [Suspect]
     Active Substance: GABAPENTIN
     Dosage: 300 MG, 1X/DAY
  15. ZIPRASIDONE HYDROCHLORIDE [Suspect]
     Active Substance: ZIPRASIDONE HYDROCHLORIDE
     Dosage: 80 MG, 1X/DAY
  16. QUETIAPINE [Suspect]
     Active Substance: QUETIAPINE
     Indication: Sleep disorder
     Dosage: 2 TABLETS, AT NIGHT
     Dates: start: 2022, end: 2022
  17. QUETIAPINE [Suspect]
     Active Substance: QUETIAPINE
     Dosage: LOWER DOSE
     Dates: start: 2022
  18. QUETIAPINE FUMARATE [Suspect]
     Active Substance: QUETIAPINE FUMARATE
     Indication: Sleep disorder
     Dosage: 2 TABLETS, AT NIGHT
     Dates: start: 2022, end: 2022
  19. QUETIAPINE FUMARATE [Suspect]
     Active Substance: QUETIAPINE FUMARATE
     Dosage: LOWER DOSE
     Dates: start: 2022
  20. FLUOXETINE [Suspect]
     Active Substance: FLUOXETINE HYDROCHLORIDE
     Dosage: UNK
     Dates: start: 2022
  21. ARIPIPRAZOLE [Suspect]
     Active Substance: ARIPIPRAZOLE
     Dosage: UNK
     Dates: start: 2022
  22. ARIPIPRAZOLE [Suspect]
     Active Substance: ARIPIPRAZOLE
     Dosage: UNK
     Dates: start: 2022
  23. DIVALPROEX SODIUM [Suspect]
     Active Substance: DIVALPROEX SODIUM
     Indication: Seizure prophylaxis
     Dosage: 500 MG, 2X/DAY
     Route: 048
     Dates: start: 2022
  24. CYCLOBENZAPRINE (TRU PHARMA) [Concomitant]
     Dosage: 10 MG, 3X/DAY
     Dates: start: 2014
  25. CYCLOBENZAPRINE (TRU PHARMA) [Concomitant]
     Dosage: 10 MG, 1X/DAY
  26. CYCLOBENZAPRINE (AUROBINDO PHARMA) [Concomitant]
  27. UNSPECIFIED INGREDIENT [Concomitant]
     Active Substance: UNSPECIFIED INGREDIENT

REACTIONS (26)
  - Hip arthroplasty [Recovered/Resolved]
  - Suicidal ideation [Recovered/Resolved]
  - Mania [Recovered/Resolved]
  - Hallucination, auditory [Recovered/Resolved]
  - Suicide attempt [Recovered/Resolved]
  - Schizoaffective disorder [Recovered/Resolved]
  - Osteoarthritis [Recovered/Resolved]
  - Thirst [Recovered/Resolved]
  - Swelling [Recovered/Resolved]
  - Injury [Recovered/Resolved]
  - Cognitive disorder [Recovered/Resolved]
  - Mental disorder [Recovered/Resolved]
  - Cerebral disorder [Recovered/Resolved]
  - Pain [Recovered/Resolved]
  - Performance status decreased [Recovered/Resolved]
  - Head injury [Recovered/Resolved]
  - Prescribed overdose [Recovered/Resolved]
  - Wrong technique in product usage process [Recovered/Resolved]
  - Somnolence [Recovered/Resolved]
  - Fall [Recovered/Resolved]
  - Memory impairment [Recovered/Resolved]
  - Fatigue [Recovered/Resolved]
  - Paranoia [Recovered/Resolved]
  - Unevaluable event [Recovered/Resolved]
  - Thinking abnormal [Recovered/Resolved]
  - Weight increased [Recovered/Resolved]

NARRATIVE: CASE EVENT DATE: 20220101
